FAERS Safety Report 8387135-6 (Version None)
Quarter: 2012Q2

REPORT INFORMATION
  Report Type: 
  Country: None (occurrence: None)
  Receive Date: 20120523
  Receipt Date: 20120523
  Transmission Date: 20120825
  Serious: Yes (Hospitalization)
  Sender: FDA-Public Use
  Company Number: None

PATIENT
  Sex: Male
  Weight: 67.586 kg

DRUGS (2)
  1. RIVAROXABAN 10MG JANSSEN [Suspect]
     Indication: DEEP VEIN THROMBOSIS
     Dosage: 10 MG QD PO
     Route: 048
     Dates: start: 20111130
  2. RIVAROXABAN 10MG JANSSEN [Suspect]
     Indication: DEEP VEIN THROMBOSIS
     Dosage: 10 MG QD PO
     Route: 048
     Dates: start: 20111201

REACTIONS (2)
  - PULMONARY EMBOLISM [None]
  - DEEP VEIN THROMBOSIS [None]
